FAERS Safety Report 4550391-6 (Version None)
Quarter: 2005Q1

REPORT INFORMATION
  Report Type: 
  Country: None (occurrence: None)
  Receive Date: 20050110
  Receipt Date: 20041228
  Transmission Date: 20050727
  Serious: Yes (Death)
  Sender: FDA-Public Use
  Company Number: 2004120532

PATIENT
  Age: 53 Year
  Sex: Male

DRUGS (9)
  1. METHYLPREDNISOLONE SODIUM SUCCINATE POWDER, STERILE (METHYLPREDNISOLON [Suspect]
     Indication: DIFFUSE LARGE B-CELL LYMPHOMA STAGE IV
     Dosage: 500 MG/M*2 (DAILY), INTRAVENOUS
     Route: 042
  2. ETOPOSIDE [Suspect]
     Indication: AUTOLOGOUS BONE MARROW TRANSPLANTATION THERAPY
     Dosage: 400 MG/M*2 (DAILY), INTRAVENOUS
     Route: 042
  3. CISPLATIN [Suspect]
     Indication: DIFFUSE LARGE B-CELL LYMPHOMA STAGE IV
     Dosage: 30 MG/M*2 (DAILY), INTRAVENOUS
     Route: 042
  4. MITOXANTRONE [Suspect]
     Indication: DIFFUSE LARGE B-CELL LYMPHOMA STAGE IV
     Dosage: 12 MG/M*2 (DAILY), INTRAVENOUS; 16 MG/M*2 (DAILY), INTRAVENOUS
     Route: 042
  5. IFOSFAMIDE [Suspect]
     Indication: DIFFUSE LARGE B-CELL LYMPHOMA STAGE IV
     Dosage: 2 G/M*2 (DAILY), INTRAVENOUS; 3.75 G/M*2 (DAILY), INTRAVENOUS
     Route: 042
  6. MESNA [Suspect]
     Indication: DIFFUSE LARGE B-CELL LYMPHOMA STAGE IV
     Dosage: 1.5 G/M*2 (CYCLIC), INTRAVENOUS; 500 MG/M*2 (DAILY)
     Route: 042
  7. CYCLOPHOSPHAMIDE [Suspect]
     Indication: AUTOLOGOUS BONE MARROW TRANSPLANTATION THERAPY
     Dosage: 3.6 G/M*2 (DAILY), INTRAVENOUS
     Route: 042
  8. CYTARABINE [Suspect]
     Indication: DIFFUSE LARGE B-CELL LYMPHOMA STAGE IV
     Dosage: 2 G/M*2 (DAILY), INTRAVENOUS; 3 G/M*2 (DAILY), INTRAVENOUS
     Route: 042
  9. CARMUSTINE [Suspect]
     Indication: AUTOLOGOUS BONE MARROW TRANSPLANTATION THERAPY
     Dosage: 600 MG/M*2 (DAILY), INTRAVENOUS
     Route: 042

REACTIONS (1)
  - MULTI-ORGAN FAILURE [None]
